FAERS Safety Report 25861430 (Version 1)
Quarter: 2025Q3

REPORT INFORMATION
  Report Type: Spontaneous
  Country: US (occurrence: US)
  Receive Date: 20250929
  Receipt Date: 20250929
  Transmission Date: 20251020
  Serious: No
  Sender: MERCK SHARP & DOHME LLC
  Company Number: US-009507513-2329692

PATIENT
  Age: 67 Year
  Sex: Female

DRUGS (1)
  1. BELSOMRA [Suspect]
     Active Substance: SUVOREXANT
     Indication: Insomnia
     Dosage: 10 MG / NIGHTLY
     Route: 048
     Dates: start: 20250902, end: 20250913

REACTIONS (3)
  - Drug ineffective [Unknown]
  - Insomnia [Unknown]
  - Product use complaint [Unknown]

NARRATIVE: CASE EVENT DATE: 20250902
